FAERS Safety Report 8504724-6 (Version None)
Quarter: 2012Q3

REPORT INFORMATION
  Report Type: 
  Country: None (occurrence: None)
  Receive Date: 20120711
  Receipt Date: 20120626
  Transmission Date: 20120928
  Serious: No
  Sender: FDA-Public Use
  Company Number: US-009507513-1206USA04704

PATIENT

DRUGS (2)
  1. ISENTRESS [Suspect]
     Indication: HIV INFECTION
     Dosage: 400 MG, BID
     Route: 048
     Dates: start: 20120608, end: 20120614
  2. METHADON HCL TAB [Concomitant]

REACTIONS (1)
  - WITHDRAWAL SYNDROME [None]
